APPROVED DRUG PRODUCT: DDAVP
Active Ingredient: DESMOPRESSIN ACETATE
Strength: 0.004MG/ML
Dosage Form/Route: INJECTABLE;INJECTION
Application: N018938 | Product #001 | TE Code: AP
Applicant: NORDIC PHARMA INC
Approved: Mar 30, 1984 | RLD: Yes | RS: Yes | Type: RX